FAERS Safety Report 6883741-6 (Version None)
Quarter: 2010Q3

REPORT INFORMATION
  Report Type: 
  Country: None (occurrence: None)
  Receive Date: 20100729
  Receipt Date: 20100726
  Transmission Date: 20110219
  Serious: Yes (Other)
  Sender: FDA-Public Use
  Company Number: A0872790A

PATIENT
  Age: 35 Year
  Sex: Female

DRUGS (21)
  1. COMBIVIR [Suspect]
     Indication: HIV INFECTION
     Route: 048
     Dates: start: 20020108
  2. VIRACEPT [Suspect]
     Indication: HIV INFECTION
     Route: 048
     Dates: start: 20020108
  3. VIRAMUNE [Suspect]
     Indication: HIV INFECTION
     Route: 048
     Dates: start: 20020108
  4. NYSTATIN [Concomitant]
  5. POTASSIUM CHLORIDE [Concomitant]
  6. METRONIDAZOLE [Concomitant]
  7. ACYCLOVIR [Concomitant]
  8. AMINOPHYLLINE [Concomitant]
  9. AMOXICILLIN TRIHYDRATE [Concomitant]
  10. BACTRIM [Concomitant]
  11. BENZALKONIUM CHLORIDE [Concomitant]
  12. CEFTRIAXONE SODIUM [Concomitant]
  13. DIGOXIN [Concomitant]
  14. FENOTEROL HYDROBROMIDE [Concomitant]
  15. FOLIC ACID [Concomitant]
  16. FOLINIC ACID [Concomitant]
  17. FUROSEMIDE [Concomitant]
  18. HYDRALAZINE HYDROCHLORIDE [Concomitant]
  19. IPRATROPIUM BROMIDE [Concomitant]
  20. IRON [Concomitant]
  21. METHYLPREDNISOLONE [Concomitant]

REACTIONS (2)
  - DRUG EXPOSURE DURING PREGNANCY [None]
  - STILLBIRTH [None]
